FAERS Safety Report 19002775 (Version 1)
Quarter: 2021Q1

REPORT INFORMATION
  Report Type: Spontaneous
  Country: US (occurrence: US)
  Receive Date: 20210312
  Receipt Date: 20210312
  Transmission Date: 20210420
  Serious: Yes (Hospitalization, Other)
  Sender: FDA-Public Use
  Company Number: US-DRREDDYS-USA/USA/21/0132784

PATIENT
  Age: 28 Year
  Sex: Female

DRUGS (7)
  1. QUETIAPINE FUMARATE TABLETS [Suspect]
     Active Substance: QUETIAPINE FUMARATE
     Indication: AGITATION
     Dosage: NIGHTLY
     Route: 048
     Dates: start: 2020
  2. QUETIAPINE FUMARATE TABLETS [Suspect]
     Active Substance: QUETIAPINE FUMARATE
     Dosage: ADDITIONAL 25 MG UP TO TWO TIMES A DAY AS NEEDED; REQUIRED ONLY ONE ADDITIONAL QUETIAPINE 25 MG DURI
     Route: 048
     Dates: start: 2020
  3. ATENOLOL. [Concomitant]
     Active Substance: ATENOLOL
     Indication: HYPERTHYROIDISM
     Dates: start: 2020
  4. QUETIAPINE FUMARATE TABLETS [Suspect]
     Active Substance: QUETIAPINE FUMARATE
     Route: 048
     Dates: start: 202004
  5. METHIMAZOLE. [Concomitant]
     Active Substance: METHIMAZOLE
     Indication: HYPERTHYROIDISM
     Dates: start: 202004
  6. QUETIAPINE FUMARATE TABLETS [Suspect]
     Active Substance: QUETIAPINE FUMARATE
     Indication: AFFECTIVE DISORDER
     Dosage: 50 MG IN THE MORNING AND 100 MG AT NIGHT
     Route: 048
     Dates: start: 2020
  7. QUETIAPINE FUMARATE TABLETS [Suspect]
     Active Substance: QUETIAPINE FUMARATE
     Dosage: 50 MG IN THE MORNING AND 100 MG AT NIGHT
     Route: 048
     Dates: start: 2020

REACTIONS (2)
  - Dizziness [Recovered/Resolved]
  - Sedation [Recovered/Resolved]

NARRATIVE: CASE EVENT DATE: 2020
